FAERS Safety Report 4358486-7 (Version None)
Quarter: 2004Q2

REPORT INFORMATION
  Report Type: 
  Country: None (occurrence: None)
  Receive Date: 20040514
  Receipt Date: 20001002
  Transmission Date: 20050107
  Serious: Yes (Hospitalization, Other)
  Sender: FDA-Public Use
  Company Number: PHNU2000DE01883

PATIENT
  Age: 46 Year
  Sex: Male

DRUGS (3)
  1. DOPERGIN [Suspect]
     Route: 065
  2. PRAVIDEL [Suspect]
     Indication: PROLACTINOMA
     Route: 048
     Dates: start: 19900101, end: 20020401
  3. ASBESTOS [Suspect]

REACTIONS (14)
  - ASBESTOSIS [None]
  - BIOPSY LUNG ABNORMAL [None]
  - CALCINOSIS [None]
  - DRUG INTERACTION [None]
  - DYSPNOEA [None]
  - FALL [None]
  - FEELING ABNORMAL [None]
  - LUNG DISORDER [None]
  - LUNG INFILTRATION [None]
  - PLEURAL FIBROSIS [None]
  - PNEUMOTHORAX [None]
  - PULMONARY FIBROSIS [None]
  - RESTRICTIVE PULMONARY DISEASE [None]
  - SYNCOPE [None]
